FAERS Safety Report 8381843-9 (Version None)
Quarter: 2012Q2

REPORT INFORMATION
  Report Type: 
  Country: None (occurrence: None)
  Receive Date: 20120523
  Receipt Date: 20120523
  Transmission Date: 20120825
  Serious: Yes (Other)
  Sender: FDA-Public Use
  Company Number: None

PATIENT
  Sex: Female

DRUGS (1)
  1. TEMODAR [Suspect]
     Indication: NEOPLASM MALIGNANT
     Dosage: 120MG ONCE DAILY ORAL
     Route: 048
     Dates: start: 20120329, end: 20120516

REACTIONS (1)
  - PLATELET COUNT DECREASED [None]
